FAERS Safety Report 26090728 (Version 2)
Quarter: 2025Q4

REPORT INFORMATION
  Report Type: Report from Study
  Country: US (occurrence: US)
  Receive Date: 20251126
  Receipt Date: 20251205
  Transmission Date: 20260117
  Serious: Yes (Hospitalization, Other)
  Sender: ACADIA PHARMACEUTICALS
  Company Number: US-ACADIA PHARMACEUTICALS INC.-ACA-2025-PIM-012389

PATIENT
  Age: 78 Year
  Sex: Female

DRUGS (16)
  1. NUPLAZID [Suspect]
     Active Substance: PIMAVANSERIN TARTRATE
     Indication: Parkinson^s disease psychosis
     Dosage: 34 MILLIGRAM, QD
     Route: 048
     Dates: start: 20241125
  2. GABAPENTIN [Concomitant]
     Active Substance: GABAPENTIN
  3. CYANOCOBALAMIN [Concomitant]
     Active Substance: CYANOCOBALAMIN
  4. PEG 3350 [Concomitant]
     Active Substance: POLYETHYLENE GLYCOL 3350
  5. ACETAMINOPHEN [Concomitant]
     Active Substance: ACETAMINOPHEN
  6. MOMETASONE FUROATE [Concomitant]
     Active Substance: MOMETASONE FUROATE
  7. ALBUTEROL [Concomitant]
     Active Substance: ALBUTEROL
  8. CARBIDOPA\LEVODOPA [Concomitant]
     Active Substance: CARBIDOPA\LEVODOPA
  9. CLONAZEPAM [Concomitant]
     Active Substance: CLONAZEPAM
  10. AMANTADINE [Concomitant]
     Active Substance: AMANTADINE
  11. DULOXETINE [Concomitant]
     Active Substance: DULOXETINE
  12. FOLIC ACID [Concomitant]
     Active Substance: FOLIC ACID
  13. DEPAKOTE [Concomitant]
     Active Substance: DIVALPROEX SODIUM
  14. IBRANCE [Concomitant]
     Active Substance: PALBOCICLIB
  15. VITAMINS NOS [Concomitant]
     Active Substance: VITAMINS
  16. MINERALS [Concomitant]
     Active Substance: MINERALS

REACTIONS (3)
  - Nephrolithiasis [Unknown]
  - Urinary tract infection [Unknown]
  - Abnormal behaviour [Unknown]

NARRATIVE: CASE EVENT DATE: 20251112
